FAERS Safety Report 4518383-0 (Version None)
Quarter: 2004Q4

REPORT INFORMATION
  Report Type: 
  Country: None (occurrence: None)
  Receive Date: 20041202
  Receipt Date: 20041109
  Transmission Date: 20050328
  Serious: Yes (Death)
  Sender: FDA-Public Use
  Company Number: 2004-119877-NL

PATIENT

DRUGS (2)
  1. MENOTROPINS [Suspect]
  2. CHORIONIC GONADOTROPIN [Suspect]

REACTIONS (9)
  - ABORTION THREATENED [None]
  - CERVIX DISORDER [None]
  - DRUG EXPOSURE DURING PREGNANCY [None]
  - MULTIPLE PREGNANCY [None]
  - OVARIAN HYPERSTIMULATION SYNDROME [None]
  - PREMATURE RUPTURE OF MEMBRANES [None]
  - PYREXIA [None]
  - STILLBIRTH [None]
  - UTERINE CONTRACTIONS DURING PREGNANCY [None]
